FAERS Safety Report 5708310-2 (Version None)
Quarter: 2008Q2

REPORT INFORMATION
  Report Type: 
  Country: None (occurrence: None)
  Receive Date: 20080414
  Receipt Date: 20080225
  Transmission Date: 20081010
  Serious: Yes (Hospitalization)
  Sender: FDA-Public Use
  Company Number: 2008AL002051

PATIENT
  Age: 58 Year
  Sex: Male

DRUGS (5)
  1. DICLOFENAC SODIUM [Suspect]
     Indication: PAIN
     Dosage: 50 MG; PO
     Route: 048
     Dates: start: 20071201, end: 20080204
  2. METOCLOPRAMIDE [Concomitant]
  3. IPRATROPIUM BROMIDE [Concomitant]
  4. MORPHINE HYDROCHLORIDE/MORPHINE SULFATE [Concomitant]
  5. CO-DANTHRAMER [Concomitant]

REACTIONS (4)
  - DUODENAL ULCER [None]
  - HAEMATEMESIS [None]
  - HAEMOGLOBIN DECREASED [None]
  - HELICOBACTER INFECTION [None]
